FAERS Safety Report 11058927 (Version 1)
Quarter: 2015Q2

REPORT INFORMATION
  Report Type: Spontaneous
  Country: US (occurrence: None)
  Receive Date: 20150416
  Receipt Date: 20150416
  Transmission Date: 20150821
  Serious: Yes (Hospitalization)
  Sender: FDA-Public Use
  Company Number: AUR-APL-2014-08942

PATIENT
  Age: 64 Year
  Sex: Male
  Weight: 103 kg

DRUGS (19)
  1. CHLORTHALIDONE (CHLORTALIDONE) [Suspect]
     Active Substance: CHLORTHALIDONE
     Indication: HYPERTENSION
     Route: 048
     Dates: start: 20130319, end: 20140813
  2. ROSUVASTATIN [Concomitant]
     Active Substance: ROSUVASTATIN
  3. NEXIUM [Concomitant]
     Active Substance: ESOMEPRAZOLE MAGNESIUM
  4. TRAMADOL [Concomitant]
     Active Substance: TRAMADOL
  5. FLUNISOLIDE. [Concomitant]
     Active Substance: FLUNISOLIDE
  6. LORATADINE. [Concomitant]
     Active Substance: LORATADINE
  7. PREGABALIN. [Concomitant]
     Active Substance: PREGABALIN
  8. ATENOLOL. [Concomitant]
     Active Substance: ATENOLOL
  9. PROBIOTIC (BIFIDOBACTERIUM LACTIS) [Concomitant]
  10. LISINOPRIL. [Suspect]
     Active Substance: LISINOPRIL
     Indication: HYPERTENSION
     Route: 048
     Dates: start: 20140303, end: 20140703
  11. KETOCONAZOLE. [Concomitant]
     Active Substance: KETOCONAZOLE
  12. ALKA-SELTZER (ACETYLSALICYLIC ACID, CITRIC ACID, SODIUM BICARBONATE) [Concomitant]
  13. TAMSULOSIN [Concomitant]
     Active Substance: TAMSULOSIN
  14. DULOXETINE [Concomitant]
     Active Substance: DULOXETINE
  15. BACLOFEN. [Concomitant]
     Active Substance: BACLOFEN
  16. SILDENAFIL. [Concomitant]
     Active Substance: SILDENAFIL
  17. LATANOPROST. [Concomitant]
     Active Substance: LATANOPROST
  18. TIMOLOL MALEATE. [Concomitant]
     Active Substance: TIMOLOL MALEATE
  19. FISH OIL CONCENTRATE (FISH OIL) [Concomitant]

REACTIONS (1)
  - Acute kidney injury [None]

NARRATIVE: CASE EVENT DATE: 20140812
